FAERS Safety Report 24226535 (Version 2)
Quarter: 2024Q3

REPORT INFORMATION
  Report Type: Report from Study
  Country: CA (occurrence: None)
  Receive Date: 20240820
  Receipt Date: 20240919
  Transmission Date: 20241016
  Serious: Yes (Hospitalization, Other)
  Sender: ORION
  Company Number: CA-PFIZER INC-202400238355

PATIENT
  Age: 11 Year
  Sex: Male

DRUGS (4)
  1. METHOTREXATE [Suspect]
     Active Substance: METHOTREXATE
     Indication: Product used for unknown indication
  2. REMICADE [Suspect]
     Active Substance: INFLIXIMAB
     Indication: Crohn^s disease
  3. REMICADE [Suspect]
     Active Substance: INFLIXIMAB
     Indication: Crohn^s disease
  4. REMICADE [Suspect]
     Active Substance: INFLIXIMAB

REACTIONS (4)
  - Gastrointestinal bacterial infection [Recovered/Resolved]
  - Inflammation [Recovered/Resolved]
  - Malaise [Recovered/Resolved]
  - Pancreatitis [Recovered/Resolved]
